FAERS Safety Report 17488827 (Version 1)
Quarter: 2020Q1

REPORT INFORMATION
  Report Type: Spontaneous
  Country: US (occurrence: US)
  Receive Date: 20200220
  Receipt Date: 20200220
  Transmission Date: 20200409
  Serious: Yes (Hospitalization)
  Sender: FDA-Public Use
  Company Number: None

PATIENT
  Sex: Female
  Weight: 57.7 kg

DRUGS (1)
  1. DECITABINE (5-AZA2 DEOXYCYTIDINE) (127716 ) [Suspect]
     Active Substance: DECITABINE
     Dates: start: 20200122, end: 20200126

REACTIONS (4)
  - Femur fracture [None]
  - Hypotension [None]
  - Febrile neutropenia [None]
  - Fall [None]

NARRATIVE: CASE EVENT DATE: 20200211
